FAERS Safety Report 17099894 (Version 1)
Quarter: 2019Q4

REPORT INFORMATION
  Report Type: Spontaneous
  Country: FR (occurrence: FR)
  Receive Date: 20191202
  Receipt Date: 20191202
  Transmission Date: 20200122
  Serious: Yes (Hospitalization)
  Sender: FDA-Public Use
  Company Number: FR-MYLANLABS-2019M1115572

PATIENT
  Age: 85 Year
  Sex: Female
  Weight: 60 kg

DRUGS (10)
  1. NEBIVOLOL                          /01339102/ [Concomitant]
     Active Substance: NEBIVOLOL
  2. LERCANIDIPINE                      /01366402/ [Concomitant]
     Active Substance: LERCANIDIPINE HYDROCHLORIDE
  3. LEVOTHYROX [Concomitant]
     Active Substance: LEVOTHYROXINE
     Dosage: UNK
  4. XARELTO [Concomitant]
     Active Substance: RIVAROXABAN
  5. PREDNISONE MYLAN [Suspect]
     Active Substance: PREDNISONE
     Indication: BACK PAIN
     Dosage: UNK (NON RENSEIGNEE)
     Route: 048
     Dates: start: 201906, end: 201906
  6. DAFALGAN CODEINE [Suspect]
     Active Substance: ACETAMINOPHEN\CODEINE PHOSPHATE
     Indication: BACK PAIN
     Dosage: UNK (NON RENSEIGNEE)
     Route: 048
     Dates: start: 201906, end: 20190606
  7. UVEDOSE [Concomitant]
     Active Substance: CHOLECALCIFEROL
  8. REFRESH CELLUVISC [Concomitant]
     Active Substance: CARBOXYMETHYLCELLULOSE SODIUM
  9. VALSARTAN. [Concomitant]
     Active Substance: VALSARTAN
     Dosage: UNK
  10. VISMED [Concomitant]
     Active Substance: HYALURONATE SODIUM
     Dosage: UNK

REACTIONS (6)
  - Hyponatraemia [Recovering/Resolving]
  - Abdominal pain [Recovered/Resolved]
  - Hypokalaemia [Recovered/Resolved]
  - Lipase increased [Recovering/Resolving]
  - Diarrhoea [Recovered/Resolved]
  - Vomiting [Recovered/Resolved]

NARRATIVE: CASE EVENT DATE: 20190607
